FAERS Safety Report 23587151 (Version 13)
Quarter: 2024Q4

REPORT INFORMATION
  Report Type: Report from Study
  Country: CA (occurrence: CA)
  Receive Date: 20240301
  Receipt Date: 20241228
  Transmission Date: 20250115
  Serious: Yes (Other)
  Sender: JOHNSON AND JOHNSON
  Company Number: CA-JNJFOC-20221012251

PATIENT
  Age: 50 Year
  Sex: Male
  Weight: 95 kg

DRUGS (12)
  1. REMICADE [Suspect]
     Active Substance: INFLIXIMAB
     Indication: Ankylosing spondylitis
     Dosage: ON 01-SEP-2023, THE PATIENT RECEIVED 60TH INFUSION OF INFLIXIMAB OF 800 MG.
     Route: 041
     Dates: start: 20180806
  2. REMICADE [Suspect]
     Active Substance: INFLIXIMAB
     Indication: Rheumatoid arthritis
     Route: 041
  3. REMICADE [Suspect]
     Active Substance: INFLIXIMAB
     Indication: Psoriatic arthropathy
     Route: 041
  4. REMICADE [Suspect]
     Active Substance: INFLIXIMAB
     Route: 041
  5. REMICADE [Suspect]
     Active Substance: INFLIXIMAB
     Route: 041
     Dates: start: 20230217
  6. REMICADE [Suspect]
     Active Substance: INFLIXIMAB
     Route: 041
     Dates: start: 20240216
  7. REMICADE [Suspect]
     Active Substance: INFLIXIMAB
     Route: 041
  8. REMICADE [Suspect]
     Active Substance: INFLIXIMAB
     Route: 041
  9. REMICADE [Suspect]
     Active Substance: INFLIXIMAB
     Route: 041
  10. REMICADE [Suspect]
     Active Substance: INFLIXIMAB
     Route: 041
     Dates: start: 20230217
  11. REMICADE [Suspect]
     Active Substance: INFLIXIMAB
     Route: 041
     Dates: start: 20230217
  12. ELASOMERAN [Concomitant]
     Active Substance: ELASOMERAN
     Indication: COVID-19 prophylaxis
     Dosage: THE PATIENT HAD RECEIVED 3 DOSES OF MODERNA AND ONE DOSE OF BIVALENT VACCINE.
     Route: 065

REACTIONS (14)
  - Arthritis [Not Recovered/Not Resolved]
  - Osteoarthritis [Not Recovered/Not Resolved]
  - Rotator cuff syndrome [Not Recovered/Not Resolved]
  - Injection site pain [Unknown]
  - Back pain [Not Recovered/Not Resolved]
  - Infusion related reaction [Not Recovered/Not Resolved]
  - Fatigue [Not Recovered/Not Resolved]
  - COVID-19 [Unknown]
  - Stress at work [Unknown]
  - Osteoarthritis [Not Recovered/Not Resolved]
  - Joint stiffness [Unknown]
  - Insomnia [Not Recovered/Not Resolved]
  - Hypertension [Not Recovered/Not Resolved]
  - Procedural pain [Not Recovered/Not Resolved]
